FAERS Safety Report 15073377 (Version 1)
Quarter: 2018Q2

REPORT INFORMATION
  Report Type: Spontaneous
  Country: US (occurrence: US)
  Receive Date: 20180606
  Receipt Date: 20180606
  Transmission Date: 20180711
  Serious: Yes (Disabling)
  Sender: FDA-Public Use
  Company Number: None

PATIENT
  Age: 22 Year
  Sex: Female
  Weight: 56.7 kg

DRUGS (3)
  1. METAMUCIL FIBER [Concomitant]
  2. CIPROFLOXACIN. [Suspect]
     Active Substance: CIPROFLOXACIN
     Indication: URINARY TRACT INFECTION
     Dosage: ?          QUANTITY:14 TABLET(S);?
     Route: 048
     Dates: start: 20180430, end: 20180506
  3. CULTURELLE PROBIOTICS DIGESTIVE HEALTH [Concomitant]

REACTIONS (6)
  - Abdominal pain upper [None]
  - Vomiting [None]
  - Renal pain [None]
  - Dehydration [None]
  - Urinary tract infection [None]
  - Diarrhoea [None]

NARRATIVE: CASE EVENT DATE: 20180430
